FAERS Safety Report 5345537-6 (Version None)
Quarter: 2007Q2

REPORT INFORMATION
  Report Type: 
  Country: None (occurrence: None)
  Receive Date: 20070605
  Receipt Date: 20070529
  Transmission Date: 20071010
  Serious: No
  Sender: FDA-Public Use
  Company Number: CZ-BAXTER-2007BH003105

PATIENT
  Age: 23 Month
  Sex: Male
  Weight: 11 kg

DRUGS (6)
  1. KIOVIG [Suspect]
     Indication: KAWASAKI'S DISEASE
     Route: 042
     Dates: start: 20070207, end: 20070207
  2. CLARITHROMYCIN [Concomitant]
  3. PARALEN [Concomitant]
  4. FLAVOBION [Concomitant]
  5. IBUPROFEN [Concomitant]
  6. STOPTUSSIN [Concomitant]
     Dates: start: 20070206

REACTIONS (6)
  - ANXIETY [None]
  - BODY TEMPERATURE DECREASED [None]
  - CHILLS [None]
  - HYPOPERFUSION [None]
  - OXYGEN SATURATION DECREASED [None]
  - PYREXIA [None]
